FAERS Safety Report 5802029-5 (Version None)
Quarter: 2008Q3

REPORT INFORMATION
  Report Type: 
  Country: None (occurrence: None)
  Receive Date: 20080702
  Receipt Date: 20080621
  Transmission Date: 20090109
  Serious: Yes (Other)
  Sender: FDA-Public Use
  Company Number: CHNY2008BR02417

PATIENT
  Age: 12 Year
  Sex: Female
  Weight: 47 kg

DRUGS (3)
  1. TONOPAN (NCH) (DIHYDROERGOTAMINE MESILATE, PROPYPHENAZONE, CAFFEINE CI [Suspect]
     Dosage: 2 TABLETS, ORAL
     Route: 048
     Dates: start: 20080621
  2. ENALAPRIL MALEATE [Suspect]
     Dosage: 2 TABLETS, ORAL
     Route: 048
     Dates: start: 20080621
  3. ISOSORBIDE DINITRATE [Suspect]
     Dosage: 2 TABLETS, ORAL
     Route: 048
     Dates: start: 20080621

REACTIONS (3)
  - ARRHYTHMIA [None]
  - SUICIDE ATTEMPT [None]
  - TACHYCARDIA [None]
